FAERS Safety Report 5126547-0 (Version None)
Quarter: 2006Q4

REPORT INFORMATION
  Report Type: 
  Country: None (occurrence: None)
  Receive Date: 20061011
  Receipt Date: 20061011
  Transmission Date: 20070319
  Serious: Yes (Hospitalization)
  Sender: FDA-Public Use
  Company Number: None

PATIENT
  Age: 45 Year
  Sex: Female
  Weight: 47.6277 kg

DRUGS (76)
  1. ABRAXANE [Suspect]
     Indication: DISEASE RECURRENCE
     Dosage: 145.0MG/M2 D1,D8,D15 042
     Dates: start: 20060320
  2. ABRAXANE [Suspect]
     Indication: OVARIAN CANCER
     Dosage: 145.0MG/M2 D1,D8,D15 042
     Dates: start: 20060320
  3. CARBOPLATIN [Suspect]
     Indication: OVARIAN CANCER
     Dosage: 465MG/M2 D1 042
     Dates: start: 20060315
  4. AMBIEN [Concomitant]
  5. D5/0.45NACL [Concomitant]
  6. LOVENOX [Concomitant]
  7. ACETAMINOPHEN [Concomitant]
  8. PROMETHAZINE (PHENERGAN) [Concomitant]
  9. ATIVAN [Concomitant]
  10. HYDROMORPHONE HCL [Concomitant]
  11. SOD CL [Concomitant]
  12. DEXTROSE [Concomitant]
  13. PROTONIX [Concomitant]
  14. AMITRIPTYLINE (ELAVIL) [Concomitant]
  15. ALBUMIN (HUMAN) [Concomitant]
  16. LEVAQUIN [Concomitant]
  17. LIPIDS [Concomitant]
  18. TPN [Concomitant]
  19. DIPHENHYDRAMINE (BENADRYL) [Concomitant]
  20. OXYCODONE (ROXICET) [Concomitant]
  21. OXYCODONE (PERCOCET) [Concomitant]
  22. SYRINGE (DILAUDID) [Concomitant]
  23. NALOXONE (NARCAN) [Concomitant]
  24. ZOFRAN [Concomitant]
  25. ESTRADIOL PATCH (VIVELLE) [Concomitant]
  26. BLD GLUCOSE [Concomitant]
  27. FAT EMULSION [Concomitant]
  28. HYPERAL AD CENTR [Concomitant]
  29. 15 MMOL/NAPHOS [Concomitant]
  30. ALOE VERA [Concomitant]
  31. MORPHINE [Concomitant]
  32. ARTIF TEARS [Concomitant]
  33. LEVAQUIN [Concomitant]
  34. D5./045NS-KCL20MEQ [Concomitant]
  35. COUMODIN [Concomitant]
  36. VIVELLE [Concomitant]
  37. LASIX [Concomitant]
  38. REGLAN [Concomitant]
  39. ONDANSETRON [Concomitant]
  40. POTASSIUM CHLORIDE [Concomitant]
  41. POTASSIUM [Concomitant]
  42. LOVENOX [Concomitant]
  43. PANTOPRAZOLE (PROTONIX) [Concomitant]
  44. HYPER AD CENTR [Concomitant]
  45. PEPCID [Concomitant]
  46. ALTRPLASE RECOMB (TPA) [Concomitant]
  47. DILAUDID [Concomitant]
  48. HEPARIN (HEPARIN FLUSH) [Concomitant]
  49. TRIAMTERENE (DYAZIDE) [Concomitant]
  50. FENTANYL [Concomitant]
  51. PIPERACILLIN-TAZ (ZOSYN) [Concomitant]
  52. VANCOMYCIN [Concomitant]
  53. TYLENOL SUPPOSITORY [Concomitant]
  54. HYDROMORPHONE INJECTION [Concomitant]
  55. PHENERGAN [Concomitant]
  56. CONCIDES [Concomitant]
  57. MAZZIDE [Concomitant]
  58. COUMADIN [Concomitant]
  59. ACCUV BID [Concomitant]
  60. REGLAN [Concomitant]
  61. OXYCODONE-ACET [Concomitant]
  62. PANTOPRAZOLE SODIUM [Concomitant]
  63. LEVAQUIN [Concomitant]
  64. ESTRADEM PATCH [Concomitant]
  65. DECADRON [Concomitant]
  66. TAGAMET [Concomitant]
  67. EMMEND [Concomitant]
  68. DOXIL [Concomitant]
  69. ZOLPIDEM TARTRATE [Concomitant]
  70. ESTRADIOL (VIVELLE) [Concomitant]
  71. HEPARIN LOCK-FLUSH [Concomitant]
  72. NEUPOGEN [Concomitant]
  73. ARANESP [Concomitant]
  74. ABRAXANE [Concomitant]
  75. CARBOPLATIN [Concomitant]
  76. DOXIL [Suspect]
     Indication: OVARIAN CANCER
     Dosage: 58.0MG/M2 Q 28 DAYS 042
     Dates: start: 20060525

REACTIONS (1)
  - DYSPNOEA [None]
